FAERS Safety Report 6706263-1 (Version None)
Quarter: 2010Q2

REPORT INFORMATION
  Report Type: 
  Country: None (occurrence: None)
  Receive Date: 20100503
  Receipt Date: 20100422
  Transmission Date: 20101027
  Serious: Yes (Hospitalization)
  Sender: FDA-Public Use
  Company Number: DK-JNJFOC-20100406977

PATIENT
  Sex: Male

DRUGS (1)
  1. REMICADE [Suspect]
     Indication: POLYARTHRITIS
     Dosage: 0,2,6, AND 8
     Route: 042

REACTIONS (2)
  - HEADACHE [None]
  - MIGRAINE [None]
